FAERS Safety Report 15290642 (Version 1)
Quarter: 2018Q4

REPORT INFORMATION
  Report Type: Spontaneous
  Country: FR (occurrence: FR)
  Receive Date: 20180817
  Receipt Date: 20180817
  Transmission Date: 20190204
  Serious: Yes (Other)
  Sender: FDA-Public Use
  Company Number: FR-TEVA-2018-FR-941005

PATIENT
  Sex: Female

DRUGS (3)
  1. METFORMINE MERCK [Suspect]
     Active Substance: METFORMIN HYDROCHLORIDE
     Indication: DIABETES MELLITUS
     Route: 065
  2. PROGESTERONE NOS [Suspect]
     Active Substance: PROGESTERONE
     Indication: MENSTRUAL DISORDER
     Route: 065
  3. CLOMID [Suspect]
     Active Substance: CLOMIPHENE CITRATE
     Indication: OVULATION INDUCTION
     Route: 065

REACTIONS (4)
  - Maternal exposure during pregnancy [Recovered/Resolved]
  - Hormone level abnormal [Unknown]
  - General physical health deterioration [Unknown]
  - Abortion spontaneous [Recovered/Resolved]
